FAERS Safety Report 25351335 (Version 1)
Quarter: 2025Q2

REPORT INFORMATION
  Report Type: Report from Study
  Country: US (occurrence: US)
  Receive Date: 20250523
  Receipt Date: 20250523
  Transmission Date: 20250716
  Serious: Yes (Hospitalization, Other)
  Sender: GILEAD
  Company Number: US-GILEAD-2025-0714256

PATIENT
  Age: 86 Year
  Sex: Male

DRUGS (41)
  1. AZTREONAM LYSINE [Suspect]
     Active Substance: AZTREONAM LYSINE
     Indication: Illness
     Dosage: 75MG/ML INHALATION SOLUTIONTHREE TIMES DAILY USE 28 DAYS ON CAYSTON THEN 28 DAYS OFF
     Route: 055
  2. DUPIXENT [Concomitant]
     Active Substance: DUPILUMAB
  3. ACYCLOVIR ALPHARMA [ACICLOVIR] [Concomitant]
  4. AFRIN [Concomitant]
     Active Substance: OXYMETAZOLINE HYDROCHLORIDE
  5. ALLEGRA HIVES 24HR [Concomitant]
     Active Substance: FEXOFENADINE HYDROCHLORIDE
  6. ASPIRIN [Concomitant]
     Active Substance: ASPIRIN
  7. COENZYME Q10 [Concomitant]
     Active Substance: DIETARY SUPPLEMENT\UBIDECARENONE
  8. CRESTOR [Concomitant]
     Active Substance: ROSUVASTATIN CALCIUM
  9. EZETIMIBE [Concomitant]
     Active Substance: EZETIMIBE
  10. FAMOTIDINE [Concomitant]
     Active Substance: FAMOTIDINE
  11. FIBERCON [Concomitant]
     Active Substance: CALCIUM POLYCARBOPHIL
  12. FISH OIL [Concomitant]
     Active Substance: FISH OIL
  13. FLUTICASONE PROPIONATE\SALMETEROL XINAFOATE [Concomitant]
     Active Substance: FLUTICASONE PROPIONATE\SALMETEROL XINAFOATE
  14. GAMUNEX-C [Concomitant]
     Active Substance: HUMAN IMMUNOGLOBULIN G
  15. ACETAMINOPHEN\HYDROCODONE [Concomitant]
     Active Substance: ACETAMINOPHEN\HYDROCODONE
  16. ISOSORBIDE MONONITRATE [Concomitant]
     Active Substance: ISOSORBIDE MONONITRATE
  17. LEVALBUTEROL HYDROCHLORIDE [Concomitant]
     Active Substance: LEVALBUTEROL HYDROCHLORIDE
  18. METOPROLOL SUCCINATE [Concomitant]
     Active Substance: METOPROLOL SUCCINATE
  19. MONTELUKAST SODIUM [Concomitant]
     Active Substance: MONTELUKAST SODIUM
  20. MOVE FREE JOINT HEALTH [Concomitant]
  21. NITROGLYCERIN [Concomitant]
     Active Substance: NITROGLYCERIN
  22. PROLIA [Concomitant]
     Active Substance: DENOSUMAB
  23. OMEPRAZOLE [Concomitant]
     Active Substance: OMEPRAZOLE
  24. RANOLAZINE [Concomitant]
     Active Substance: RANOLAZINE
  25. SODIUM CHLORIDE [Concomitant]
     Active Substance: SODIUM CHLORIDE
  26. TORSEMIDE [Concomitant]
     Active Substance: TORSEMIDE
  27. VALSARTAN [Concomitant]
     Active Substance: VALSARTAN
  28. VITAMIN B [Concomitant]
     Active Substance: VITAMIN B
  29. CYANOCOBALAMIN [Concomitant]
     Active Substance: CYANOCOBALAMIN
  30. VITAMIN D3 [Concomitant]
     Active Substance: CHOLECALCIFEROL
  31. VITAMIN E [Concomitant]
     Active Substance: .ALPHA.-TOCOPHEROL
  32. XANAX [Concomitant]
     Active Substance: ALPRAZOLAM
  33. PANTOPRAZOLE SODIUM [Concomitant]
     Active Substance: PANTOPRAZOLE SODIUM
  34. KETOCONAZOLE [Concomitant]
     Active Substance: KETOCONAZOLE
  35. CODEINE\GUAIFENESIN [Concomitant]
     Active Substance: CODEINE\GUAIFENESIN
  36. PREDNISONE ACETATE [Concomitant]
     Active Substance: PREDNISONE ACETATE
  37. ALPRAZOLAM [Concomitant]
     Active Substance: ALPRAZOLAM
  38. AZITHROMYCIN [Concomitant]
     Active Substance: AZITHROMYCIN
  39. PEPCID AC [Concomitant]
     Active Substance: FAMOTIDINE
  40. ALBUTEROL SULFATE [Concomitant]
     Active Substance: ALBUTEROL SULFATE
  41. RANOLAZINE [Concomitant]
     Active Substance: RANOLAZINE

REACTIONS (3)
  - Blood potassium increased [Unknown]
  - Transfusion [Unknown]
  - Polyp [Unknown]
